FAERS Safety Report 12261317 (Version 2)
Quarter: 2016Q2

REPORT INFORMATION
  Report Type: Spontaneous
  Country: FR (occurrence: FR)
  Receive Date: 20160412
  Receipt Date: 20160527
  Transmission Date: 20160815
  Serious: Yes (Death)
  Sender: FDA-Public Use
  Company Number: FR-009507513-1604FRA003355

PATIENT
  Sex: Female

DRUGS (1)
  1. TEMODAL [Suspect]
     Active Substance: TEMOZOLOMIDE
     Indication: GLIOBLASTOMA
     Dosage: 115 MG PER DAY
     Route: 048
     Dates: start: 20160205, end: 20160224

REACTIONS (3)
  - Leukopenia [Fatal]
  - Thrombocytopenia [Fatal]
  - Anaemia [Fatal]
